FAERS Safety Report 23294946 (Version 3)
Quarter: 2024Q2

REPORT INFORMATION
  Report Type: Spontaneous
  Country: DE (occurrence: DE)
  Receive Date: 20231213
  Receipt Date: 20240403
  Transmission Date: 20240716
  Serious: Yes (Other)
  Sender: FDA-Public Use
  Company Number: None

PATIENT
  Age: 74 Year
  Sex: Male

DRUGS (4)
  1. XARELTO [Suspect]
     Active Substance: RIVAROXABAN
     Indication: Atrial fibrillation
     Dosage: UNK
     Route: 048
  2. HYPROMELLOSES [Suspect]
     Active Substance: HYPROMELLOSES
     Dosage: UNK
  3. ATORVASTATIN [Suspect]
     Active Substance: ATORVASTATIN
     Dates: start: 2011
  4. ACCUPRO [Suspect]
     Active Substance: QUINAPRIL HYDROCHLORIDE
     Dosage: UNK
     Dates: start: 2004, end: 2021

REACTIONS (10)
  - Neuropathy peripheral [Recovering/Resolving]
  - Gait disturbance [Recovered/Resolved]
  - Neuralgia [Unknown]
  - Temperature intolerance [Recovered/Resolved]
  - Asthenia [Recovering/Resolving]
  - Pain in extremity [Unknown]
  - Dizziness [Recovering/Resolving]
  - Wrong technique in product usage process [Unknown]
  - Reaction to excipient [Unknown]
  - Product availability issue [Unknown]

NARRATIVE: CASE EVENT DATE: 20180101
